FAERS Safety Report 11525812 (Version 1)
Quarter: 2015Q3

REPORT INFORMATION
  Report Type: Spontaneous
  Country: US (occurrence: US)
  Receive Date: 20150918
  Receipt Date: 20150918
  Transmission Date: 20151125
  Serious: No
  Sender: FDA-Public Use
  Company Number: US-ACTELION PHARMACEUTICALS US, INC.-A-NJ2015-123863

PATIENT
  Age: 66 Year
  Sex: Female

DRUGS (1)
  1. OPSUMIT [Suspect]
     Active Substance: MACITENTAN
     Indication: PULMONARY HYPERTENSION
     Dosage: 10 MG, QD
     Route: 048

REACTIONS (8)
  - Asthma [Unknown]
  - Depressed mood [Unknown]
  - Peripheral swelling [Unknown]
  - Fatigue [Unknown]
  - Feeling abnormal [Unknown]
  - Syncope [Unknown]
  - Bronchospasm [Unknown]
  - Extra dose administered [Unknown]
